FAERS Safety Report 4822713-X (Version None)
Quarter: 2005Q4

REPORT INFORMATION
  Report Type: 
  Country: None (occurrence: None)
  Receive Date: 20051108
  Receipt Date: 20051024
  Transmission Date: 20060501
  Serious: Yes (Hospitalization)
  Sender: FDA-Public Use
  Company Number: HQWYE262226OCT05

PATIENT
  Sex: Female
  Weight: 61 kg

DRUGS (7)
  1. ENBREL [Suspect]
     Indication: RHEUMATOID ARTHRITIS
     Route: 058
     Dates: start: 20020402, end: 20050829
  2. ENBREL [Suspect]
     Route: 058
     Dates: start: 20050920, end: 20050923
  3. RHEUMATREX [Concomitant]
     Indication: RHEUMATOID ARTHRITIS
     Route: 048
     Dates: start: 20030627
  4. RHEUMATREX [Concomitant]
     Dosage: DOSE AND FREQUENCY NOT SPECIFIED
     Route: 048
     Dates: start: 20040820
  5. RHEUMATREX [Concomitant]
     Route: 048
     Dates: start: 20050802, end: 20050829
  6. PREDONINE [Concomitant]
     Indication: RHEUMATOID ARTHRITIS
     Route: 048
     Dates: end: 20050825
  7. TOCOPHERYL NICOTINATE [Concomitant]
     Indication: PERIPHERAL VASCULAR DISORDER
     Route: 048
     Dates: start: 20050802

REACTIONS (1)
  - PLATELET COUNT DECREASED [None]
